FAERS Safety Report 18756572 (Version 1)
Quarter: 2021Q1

REPORT INFORMATION
  Report Type: Spontaneous
  Country: FR (occurrence: FR)
  Receive Date: 20210119
  Receipt Date: 20210119
  Transmission Date: 20210419
  Serious: Yes (Hospitalization)
  Sender: FDA-Public Use
  Company Number: FR-TEVA-2021-FR-1869361

PATIENT
  Age: 47 Year
  Sex: Female

DRUGS (1)
  1. NAPROXENE [Suspect]
     Active Substance: NAPROXEN
     Indication: MIGRAINE
     Dosage: 1 DOSAGE FORMS
     Route: 048
     Dates: start: 20201221

REACTIONS (1)
  - Anaphylactic shock [Recovered/Resolved]

NARRATIVE: CASE EVENT DATE: 20201221
